FAERS Safety Report 6280612-3 (Version None)
Quarter: 2009Q3

REPORT INFORMATION
  Report Type: 
  Country: None (occurrence: None)
  Receive Date: 20090724
  Receipt Date: 20081023
  Transmission Date: 20100115
  Serious: No
  Sender: FDA-Public Use
  Company Number: A0750641A

PATIENT
  Age: 69 Year
  Sex: Male

DRUGS (7)
  1. AVANDIA [Suspect]
     Dosage: 8MG PER DAY
     Route: 048
     Dates: end: 20081001
  2. IMIPRAMINE [Concomitant]
  3. METFORMIN HCL [Concomitant]
  4. RANITIDINE [Concomitant]
  5. LIPITOR [Concomitant]
  6. METOPROLOL SUCCINATE [Concomitant]
  7. VITAMINS [Concomitant]

REACTIONS (3)
  - FATIGUE [None]
  - JOINT SWELLING [None]
  - SOMNOLENCE [None]
